FAERS Safety Report 8379212-0 (Version None)
Quarter: 2012Q2

REPORT INFORMATION
  Report Type: 
  Country: None (occurrence: None)
  Receive Date: 20120523
  Receipt Date: 20120514
  Transmission Date: 20120825
  Serious: Yes (Hospitalization)
  Sender: FDA-Public Use
  Company Number: JP-VERTEX PHARMACEUTICALS INC.-AE-2012-007331

PATIENT
  Age: 59 Year
  Sex: Male

DRUGS (11)
  1. TELAVIC (TELAPREVIR) [Suspect]
     Indication: HEPATITIS C
     Route: 048
     Dates: start: 20120307, end: 20120404
  2. PEGINTERFERON ALFA-2B [Concomitant]
     Route: 051
     Dates: start: 20120405
  3. ALLOPURINOL [Concomitant]
     Route: 048
  4. RIBAVIRIN [Concomitant]
     Route: 048
     Dates: start: 20120310, end: 20120316
  5. PREDNISOLONE [Concomitant]
     Route: 048
     Dates: start: 20120311, end: 20120420
  6. TELAVIC (TELAPREVIR) [Suspect]
     Route: 048
     Dates: start: 20120405
  7. RIBAVIRIN [Concomitant]
     Route: 048
     Dates: start: 20120317
  8. PEGINTERFERON ALFA-2B [Concomitant]
     Indication: HEPATITIS C
     Route: 051
     Dates: start: 20120307, end: 20120406
  9. RIBAVIRIN [Concomitant]
     Indication: HEPATITIS C
     Route: 048
     Dates: start: 20120307, end: 20120309
  10. OLOPATADINE HCL [Concomitant]
     Route: 048
     Dates: start: 20120310
  11. DOGMATYL [Concomitant]
     Route: 048
     Dates: start: 20120405

REACTIONS (1)
  - RASH [None]
